FAERS Safety Report 10392472 (Version 2)
Quarter: 2014Q1

REPORT INFORMATION
  Report Type: Spontaneous
  Country: US (occurrence: None)
  Receive Date: 20120817
  Receipt Date: 20130815
  Transmission Date: 20141002
  Serious: Yes (Other)
  Sender: FDA-Public Use
  Company Number: ADR-2011-10720

PATIENT
  Sex: Male

DRUGS (1)
  1. LIORESAL INTRATHECAL (BACLOFEN INJECTION) [Suspect]
     Indication: MUSCLE SPASTICITY
     Dosage: UNK?125MCG, DAILY, INTRATH
     Route: 037

REACTIONS (7)
  - Dizziness [None]
  - Musculoskeletal stiffness [None]
  - Hypertonia [None]
  - No therapeutic response [None]
  - Urticaria [None]
  - Seasonal allergy [None]
  - Nasal congestion [None]
